FAERS Safety Report 5923655-9 (Version None)
Quarter: 2008Q4

REPORT INFORMATION
  Report Type: 
  Country: None (occurrence: None)
  Receive Date: 20081020
  Receipt Date: 20081010
  Transmission Date: 20090506
  Serious: Yes (Hospitalization)
  Sender: FDA-Public Use
  Company Number: A0683391A

PATIENT
  Age: 59 Year
  Sex: Male
  Weight: 109.1 kg

DRUGS (8)
  1. AVANDIA [Suspect]
     Indication: DIABETES MELLITUS
     Dosage: 8MG PER DAY
     Route: 048
     Dates: start: 19990101, end: 20010501
  2. MULTI-VITAMIN [Concomitant]
  3. HUMALOG [Concomitant]
  4. GLYNASE [Concomitant]
  5. ATENOLOL [Concomitant]
  6. LOTENSIN [Concomitant]
  7. LIPITOR [Concomitant]
  8. PROTONIX [Concomitant]

REACTIONS (5)
  - CARDIAC FAILURE CONGESTIVE [None]
  - DIABETES MELLITUS [None]
  - FLUID RETENTION [None]
  - RENAL FAILURE [None]
  - SLEEP APNOEA SYNDROME [None]
